FAERS Safety Report 18290380 (Version 2)
Quarter: 2022Q3

REPORT INFORMATION
  Report Type: Spontaneous
  Country: US (occurrence: US)
  Receive Date: 20200921
  Receipt Date: 20220930
  Transmission Date: 20221027
  Serious: No
  Sender: FDA-Public Use
  Company Number: US-BIOGEN-2020BI00924472

PATIENT
  Sex: Female

DRUGS (2)
  1. SPINRAZA [Suspect]
     Active Substance: NUSINERSEN
     Indication: Spinal muscular atrophy
     Dosage: 12MG/5ML SDV (5 = 1 VIAL)
     Route: 050
  2. SPINRAZA [Suspect]
     Active Substance: NUSINERSEN
     Dosage: RECEIVED 14 MAINTENANCE DOSES BEYOND THE INITIAL 4 LOADING DOSES.
     Route: 050

REACTIONS (2)
  - Drug interaction [Unknown]
  - Swelling [Unknown]
